FAERS Safety Report 6837973-3 (Version None)
Quarter: 2010Q3

REPORT INFORMATION
  Report Type: 
  Country: None (occurrence: None)
  Receive Date: 20100713
  Receipt Date: 20070430
  Transmission Date: 20110219
  Serious: No
  Sender: FDA-Public Use
  Company Number: US-PFIZER INC-2007035049

PATIENT
  Age: 62 Year
  Sex: Female
  Weight: 56.818 kg

DRUGS (5)
  1. CHANTIX [Suspect]
     Indication: SMOKING CESSATION THERAPY
     Dates: start: 20070416
  2. DUONEB [Concomitant]
  3. ZOLOFT [Concomitant]
  4. ESTRACE [Concomitant]
  5. DRUG, UNSPECIFIED [Concomitant]
     Indication: IRRITABLE BOWEL SYNDROME

REACTIONS (2)
  - HEADACHE [None]
  - NAUSEA [None]
